FAERS Safety Report 7806648-6 (Version None)
Quarter: 2011Q4

REPORT INFORMATION
  Report Type: 
  Country: None (occurrence: None)
  Receive Date: 20111007
  Receipt Date: 20111007
  Transmission Date: 20120403
  Serious: Yes (Hospitalization)
  Sender: FDA-Public Use
  Company Number: None

PATIENT
  Sex: Female
  Weight: 47.7 kg

DRUGS (2)
  1. ERLOTINIB HYDROCHLORIDE [Suspect]
     Indication: NON-SMALL CELL LUNG CANCER
     Dosage: 150MG QD PO
     Route: 048
     Dates: start: 20110919, end: 20110927
  2. CETUXIMAB BRISTOL-MEYERS SQUIBB [Suspect]
     Indication: NON-SMALL CELL LUNG CANCER
     Dosage: 250MG/M2 Q WEEK IV
     Route: 042
     Dates: start: 20110919

REACTIONS (6)
  - NEOPLASM PROGRESSION [None]
  - DYSPHAGIA [None]
  - HYPOVOLAEMIA [None]
  - MUSCULOSKELETAL PAIN [None]
  - LUNG NEOPLASM MALIGNANT [None]
  - HYPONATRAEMIA [None]
